FAERS Safety Report 8817221 (Version 3)
Quarter: 2012Q4

REPORT INFORMATION
  Report Type: 
  Country: US (occurrence: US)
  Receive Date: 20121001
  Receipt Date: 20121015
  Transmission Date: 20130627
  Serious: No
  Sender: FDA-Public Use
  Company Number: US-TEVA-362014USA

PATIENT
  Age: 28 Year
  Sex: Female
  Weight: 57.66 kg

DRUGS (1)
  1. PLAN B ONE-STEP [Suspect]
     Indication: POST COITAL CONTRACEPTION
     Dosage: 1.5 Milligram Daily;
     Route: 048
     Dates: start: 20120923, end: 20120923

REACTIONS (5)
  - Migraine [Recovered/Resolved]
  - Anxiety [Recovered/Resolved]
  - Oropharyngeal pain [Recovered/Resolved]
  - Abdominal pain [Recovered/Resolved]
  - Fatigue [Recovered/Resolved]
